FAERS Safety Report 10305238 (Version 1)
Quarter: 2014Q3

REPORT INFORMATION
  Report Type: Spontaneous
  Country: US (occurrence: None)
  Receive Date: 20140711
  Receipt Date: 20140711
  Transmission Date: 20150326
  Serious: No
  Sender: FDA-Public Use
  Company Number: None

PATIENT
  Age: 56 Year
  Sex: Male

DRUGS (4)
  1. DEPAKOTE [Concomitant]
     Active Substance: DIVALPROEX SODIUM
  2. GABAPENTIN. [Concomitant]
     Active Substance: GABAPENTIN
  3. ASA [Concomitant]
     Active Substance: ASPIRIN
  4. VIVITROL [Suspect]
     Active Substance: NALTREXONE
     Route: 030
     Dates: start: 20140709

REACTIONS (4)
  - Headache [None]
  - Muscle twitching [None]
  - Tinnitus [None]
  - Ear pain [None]

NARRATIVE: CASE EVENT DATE: 20140709
